FAERS Safety Report 8175867-4 (Version None)
Quarter: 2012Q1

REPORT INFORMATION
  Report Type: 
  Country: None (occurrence: None)
  Receive Date: 20120228
  Receipt Date: 20120217
  Transmission Date: 20120608
  Serious: Yes (Hospitalization)
  Sender: FDA-Public Use
  Company Number: 2011SP051966

PATIENT
  Age: 72 Year
  Sex: Female

DRUGS (5)
  1. FENTANYL-100 [Concomitant]
  2. ROCURONIUM BROMIDE [Suspect]
     Indication: NEUROMUSCULAR BLOCKING THERAPY
     Dosage: IV
     Route: 042
  3. PILSICAINIDE [Concomitant]
  4. REMIFENTANIL [Concomitant]
  5. PROPOFOL [Concomitant]

REACTIONS (4)
  - TACHYCARDIA PAROXYSMAL [None]
  - SUPRAVENTRICULAR EXTRASYSTOLES [None]
  - DRUG INEFFECTIVE [None]
  - BLOOD PRESSURE DECREASED [None]
